FAERS Safety Report 6041751-5 (Version None)
Quarter: 2009Q1

REPORT INFORMATION
  Report Type: 
  Country: None (occurrence: None)
  Receive Date: 20090116
  Receipt Date: 20090106
  Transmission Date: 20090719
  Serious: Yes (Death, Other)
  Sender: FDA-Public Use
  Company Number: FR-PFIZER INC-2009153017

PATIENT

DRUGS (1)
  1. LYRICA [Suspect]
     Indication: NEURALGIA
     Dates: start: 20071101

REACTIONS (10)
  - ASCITES [None]
  - C-REACTIVE PROTEIN INCREASED [None]
  - GAMMA-GLUTAMYLTRANSFERASE INCREASED [None]
  - JAUNDICE [None]
  - NEOPLASM MALIGNANT [None]
  - OEDEMA PERIPHERAL [None]
  - RED BLOOD CELL SEDIMENTATION RATE INCREASED [None]
  - SOMNOLENCE [None]
  - TRANSAMINASES INCREASED [None]
  - TREMOR [None]
